FAERS Safety Report 4443473-0 (Version None)
Quarter: 2004Q3

REPORT INFORMATION
  Report Type: 
  Country: None (occurrence: None)
  Receive Date: 20040908
  Receipt Date: 20040608
  Transmission Date: 20050211
  Serious: Yes (Death, Hospitalization)
  Sender: FDA-Public Use
  Company Number: PHHO2004NO08103

PATIENT
  Age: 50 Year
  Sex: Male

DRUGS (2)
  1. LESCOL [Suspect]
     Indication: RENAL TRANSPLANT
     Dosage: 80 MG, QD
     Route: 048
     Dates: start: 20021003, end: 20040315
  2. NEORAL [Suspect]
     Indication: RENAL TRANSPLANT

REACTIONS (4)
  - CACHEXIA [None]
  - CHEST PAIN [None]
  - LUNG NEOPLASM MALIGNANT [None]
  - MALIGNANT NEOPLASM PROGRESSION [None]
